FAERS Safety Report 8927462 (Version 2)
Quarter: 2015Q2

REPORT INFORMATION
  Report Type: Spontaneous
  Country: US (occurrence: US)
  Receive Date: 20121127
  Receipt Date: 20150622
  Transmission Date: 20150821
  Serious: Yes (Other)
  Sender: FDA-Public Use
  Company Number: US-BAYER-2012-122496

PATIENT
  Age: 42 Year
  Sex: Female

DRUGS (17)
  1. FLUOXETINE [Concomitant]
     Active Substance: FLUOXETINE\FLUOXETINE HYDROCHLORIDE
     Dosage: 20 MG, UNK
     Dates: start: 20120415
  2. BETASERON [Concomitant]
     Active Substance: INTERFERON BETA-1B
  3. YASMIN [Suspect]
     Active Substance: DROSPIRENONE\ETHINYL ESTRADIOL
     Indication: ACNE
     Dosage: UNK
     Dates: start: 20120417, end: 201206
  4. GIANVI [Suspect]
     Active Substance: DROSPIRENONE\ETHINYL ESTRADIOL
     Dosage: UNK
     Dates: start: 20100823, end: 201202
  5. FLUOXETINE [Concomitant]
     Active Substance: FLUOXETINE\FLUOXETINE HYDROCHLORIDE
     Dosage: 20 MG, UNK
     Dates: start: 20120525
  6. ALLEGRA [Concomitant]
     Active Substance: FEXOFENADINE HYDROCHLORIDE
  7. TAZORAC [Concomitant]
     Active Substance: TAZAROTENE
     Dosage: UNK
     Dates: start: 20120517
  8. VITAMIN D [Concomitant]
     Active Substance: CHOLECALCIFEROL
  9. FLUOXETINE [Concomitant]
     Active Substance: FLUOXETINE\FLUOXETINE HYDROCHLORIDE
     Dosage: 20 MG, UNK
     Dates: start: 20120611
  10. YAZ [Suspect]
     Active Substance: DROSPIRENONE\ETHINYL ESTRADIOL
     Dosage: UNK
     Dates: start: 20100125, end: 20100822
  11. FISH OIL [Concomitant]
     Active Substance: FISH OIL
  12. TRETINOIN. [Concomitant]
     Active Substance: TRETINOIN
  13. NUVIGIL [Concomitant]
     Active Substance: ARMODAFINIL
  14. ERYTHROMYCIN. [Concomitant]
     Active Substance: ERYTHROMYCIN
     Dosage: UNK
     Dates: start: 20120405
  15. AMITRIPTYLINE [Concomitant]
     Active Substance: AMITRIPTYLINE
     Dosage: 10 MG, UNK
     Dates: start: 20120412
  16. IBUPROFEN. [Concomitant]
     Active Substance: IBUPROFEN
     Dosage: 800 MG, UNK
     Dates: start: 20120625
  17. TRAMADOL [Concomitant]
     Active Substance: TRAMADOL

REACTIONS (6)
  - Thrombophlebitis superficial [None]
  - Pain [None]
  - Product use issue [None]
  - Deep vein thrombosis [None]
  - Injury [None]
  - Emotional distress [None]

NARRATIVE: CASE EVENT DATE: 20120625
